FAERS Safety Report 12885978 (Version 7)
Quarter: 2017Q1

REPORT INFORMATION
  Report Type: Report from Study
  Country: US (occurrence: US)
  Receive Date: 20161026
  Receipt Date: 20170216
  Transmission Date: 20170428
  Serious: Yes (Life-Threatening, Hospitalization)
  Sender: FDA-Public Use
  Company Number: US-JNJFOC-20161017493

PATIENT
  Age: 66 Year
  Sex: Female
  Weight: 68.95 kg

DRUGS (3)
  1. INVOKANA [Suspect]
     Active Substance: CANAGLIFLOZIN
     Indication: TYPE 2 DIABETES MELLITUS
     Route: 048
     Dates: start: 201610, end: 20161009
  2. ATENOLOL. [Concomitant]
     Active Substance: ATENOLOL
     Indication: HYPERTENSION
     Dosage: STARTED SINCE THE LAST 6 YEARS
     Route: 065
  3. GLUCOPHAGE [Concomitant]
     Active Substance: METFORMIN HYDROCHLORIDE
     Indication: TYPE 2 DIABETES MELLITUS
     Route: 065
     Dates: start: 2012, end: 20161016

REACTIONS (6)
  - Drug-induced liver injury [Recovering/Resolving]
  - Dehydration [Not Recovered/Not Resolved]
  - Jaundice [Unknown]
  - Dyspnoea [Not Recovered/Not Resolved]
  - Weight decreased [Not Recovered/Not Resolved]
  - Blood glucose increased [Unknown]

NARRATIVE: CASE EVENT DATE: 2016
